FAERS Safety Report 5339792-6 (Version None)
Quarter: 2007Q2

REPORT INFORMATION
  Report Type: 
  Country: None (occurrence: None)
  Receive Date: 20070525
  Receipt Date: 20070517
  Transmission Date: 20071010
  Serious: Yes (Death)
  Sender: FDA-Public Use
  Company Number: CERZ-11693

PATIENT
  Age: 63 Year
  Sex: Male
  Weight: 89.5 kg

DRUGS (1)
  1. CEREZYME [Suspect]
     Indication: GAUCHER'S DISEASE
     Dosage: 1200 UNITS Q4WKS IV
     Route: 042
     Dates: start: 19971216, end: 20070419

REACTIONS (3)
  - ARRHYTHMIA [None]
  - MULTIPLE MYELOMA [None]
  - THROMBOSIS [None]
